FAERS Safety Report 14702169 (Version 1)
Quarter: 2018Q2

REPORT INFORMATION
  Report Type: Spontaneous
  Country: US (occurrence: US)
  Receive Date: 20180401
  Receipt Date: 20180401
  Transmission Date: 20180711
  Serious: No
  Sender: FDA-Public Use
  Company Number: US-JNJFOC-20180319771

PATIENT
  Age: 59 Year
  Sex: Female
  Weight: 77.11 kg

DRUGS (8)
  1. XARELTO [Suspect]
     Active Substance: RIVAROXABAN
     Indication: ATRIAL FLUTTER
     Route: 048
     Dates: start: 201711
  2. MULTAQ [Concomitant]
     Active Substance: DRONEDARONE
     Route: 048
  3. SINGULAIR [Concomitant]
     Active Substance: MONTELUKAST SODIUM
     Route: 048
  4. SPIRIVA [Concomitant]
     Active Substance: TIOTROPIUM BROMIDE MONOHYDRATE
     Route: 048
  5. PROGESTERONE. [Concomitant]
     Active Substance: PROGESTERONE
     Route: 065
  6. VITAMIN D [Concomitant]
     Active Substance: CHOLECALCIFEROL
     Route: 048
  7. SYNTHROID [Concomitant]
     Active Substance: LEVOTHYROXINE SODIUM
     Route: 048
  8. ESTRADIOL. [Concomitant]
     Active Substance: ESTRADIOL
     Route: 048

REACTIONS (6)
  - Atrial flutter [Recovered/Resolved]
  - Feeling abnormal [Unknown]
  - Off label use [Unknown]
  - Arthritis [Recovered/Resolved]
  - Product use in unapproved indication [Unknown]
  - Influenza [Recovered/Resolved]

NARRATIVE: CASE EVENT DATE: 201711
